FAERS Safety Report 25263405 (Version 1)
Quarter: 2025Q2

REPORT INFORMATION
  Report Type: Spontaneous
  Country: US (occurrence: US)
  Receive Date: 20250502
  Receipt Date: 20250502
  Transmission Date: 20250716
  Serious: Yes (Hospitalization)
  Sender: CATALYST PHARMA
  Company Number: US-CATALYSTPHARMACEUTICALPARTNERS-US-CATA-25-00630

PATIENT
  Sex: Female

DRUGS (2)
  1. FYCOMPA [Suspect]
     Active Substance: PERAMPANEL
     Indication: Product used for unknown indication
     Dosage: 4 MG TABLET- TAKE 1 TABLET EVERY NIGHT
     Route: 048
  2. OXCARBAZEPINE [Suspect]
     Active Substance: OXCARBAZEPINE
     Indication: Seizure
     Route: 065

REACTIONS (7)
  - Gait inability [Unknown]
  - Heart rate decreased [Unknown]
  - Blood pressure increased [Unknown]
  - Nephropathy toxic [Unknown]
  - Urine odour abnormal [Unknown]
  - Illness [Unknown]
  - Toxicologic test abnormal [Unknown]
